FAERS Safety Report 4267015-8 (Version None)
Quarter: 2004Q1

REPORT INFORMATION
  Report Type: 
  Country: None (occurrence: None)
  Receive Date: 20040107
  Receipt Date: 20031216
  Transmission Date: 20041129
  Serious: Yes (Other)
  Sender: FDA-Public Use
  Company Number: NSADSS2003015081

PATIENT
  Age: 41 Year
  Sex: Male
  Weight: 70.3075 kg

DRUGS (17)
  1. ULTRAM [Suspect]
     Indication: BACK PAIN
     Dosage: 1-2 TABLETS QID PRN
  2. ULTRAM [Suspect]
     Indication: NEURALGIA
     Dosage: 1-2 TABLETS QID PRN
  3. METROGEL [Concomitant]
  4. PREDNISONE [Concomitant]
  5. MONODOX [Concomitant]
  6. ACCUTANE [Concomitant]
  7. NEURONTIN [Concomitant]
  8. ZYDONE (VICODIN) [Concomitant]
  9. ELAVIL [Concomitant]
  10. TOFRANIL [Concomitant]
  11. LIDODERM (LIDOCAINE) [Concomitant]
  12. ZANAFLEX [Concomitant]
  13. NORCO (VICODIN) [Concomitant]
  14. PERCOCET [Concomitant]
  15. KADIAN [Concomitant]
  16. DURAGESIC [Concomitant]
  17. HYDROCODONE /APAP (HYDROCODONE) [Concomitant]

REACTIONS (6)
  - ANXIETY [None]
  - BACK PAIN [None]
  - CHILLS [None]
  - COLD SWEAT [None]
  - FEELING COLD [None]
  - PERIPHERAL COLDNESS [None]
